FAERS Safety Report 5591665-X (Version None)
Quarter: 2008Q1

REPORT INFORMATION
  Report Type: 
  Country: None (occurrence: None)
  Receive Date: 20080115
  Receipt Date: 20080111
  Transmission Date: 20080703
  Serious: Yes (Hospitalization)
  Sender: FDA-Public Use
  Company Number: GB-TEVA-166226ISR

PATIENT
  Age: 27 Year
  Sex: Male

DRUGS (6)
  1. VALPROIC ACID [Suspect]
     Indication: MOOD ALTERED
     Route: 048
     Dates: start: 20070604, end: 20070604
  2. CLOZAPINE [Suspect]
     Indication: SCHIZOPHRENIA
     Route: 048
     Dates: start: 20011003
  3. CLOZAPINE [Suspect]
     Route: 048
     Dates: start: 20070604, end: 20070604
  4. COCAINE [Suspect]
  5. HYOSCINE [Suspect]
     Route: 048
     Dates: start: 20070604, end: 20070604
  6. RANITIDINE [Suspect]
     Route: 048
     Dates: start: 20070604, end: 20070604

REACTIONS (9)
  - BLOOD CREATINE PHOSPHOKINASE INCREASED [None]
  - C-REACTIVE PROTEIN INCREASED [None]
  - HYPOXIA [None]
  - LOWER RESPIRATORY TRACT INFECTION [None]
  - OVERDOSE [None]
  - PYREXIA [None]
  - RENAL FAILURE ACUTE [None]
  - TACHYCARDIA [None]
  - THROMBOCYTOPENIA [None]
